FAERS Safety Report 18324829 (Version 1)
Quarter: 2020Q3

REPORT INFORMATION
  Report Type: Spontaneous
  Country: US (occurrence: US)
  Receive Date: 20200928
  Receipt Date: 20200928
  Transmission Date: 20201103
  Serious: No
  Sender: FDA-Public Use
  Company Number: US-SEATTLE GENETICS-2020SGN02110

PATIENT
  Sex: Female

DRUGS (6)
  1. ADCETRIS [Suspect]
     Active Substance: BRENTUXIMAB VEDOTIN
     Dosage: 100 MG
     Route: 042
     Dates: start: 20191213, end: 20191213
  2. ADCETRIS [Suspect]
     Active Substance: BRENTUXIMAB VEDOTIN
     Dosage: 100 MG
     Route: 042
     Dates: start: 20200131, end: 20200131
  3. ADCETRIS [Suspect]
     Active Substance: BRENTUXIMAB VEDOTIN
     Dosage: 100 MG
     Route: 042
     Dates: start: 20200110, end: 20200110
  4. ADCETRIS [Suspect]
     Active Substance: BRENTUXIMAB VEDOTIN
     Dosage: 100 MG
     Route: 042
     Dates: start: 20200221, end: 20200221
  5. ADCETRIS [Suspect]
     Active Substance: BRENTUXIMAB VEDOTIN
     Indication: CUTANEOUS T-CELL LYMPHOMA
     Dosage: 110 MG
     Route: 042
     Dates: start: 20191122, end: 20191122
  6. ADCETRIS [Suspect]
     Active Substance: BRENTUXIMAB VEDOTIN
     Dosage: 100 MG
     Route: 042
     Dates: start: 20200313, end: 20200313

REACTIONS (6)
  - Iron deficiency [Unknown]
  - Cutaneous T-cell lymphoma [Unknown]
  - Pain [Unknown]
  - Lymphadenopathy [Not Recovered/Not Resolved]
  - Oedema [Unknown]
  - Drug ineffective [Unknown]

NARRATIVE: CASE EVENT DATE: 20200424
